FAERS Safety Report 4477590-6 (Version None)
Quarter: 2004Q4

REPORT INFORMATION
  Report Type: 
  Country: None (occurrence: None)
  Receive Date: 20041013
  Receipt Date: 20040928
  Transmission Date: 20050328
  Serious: Yes (Hospitalization)
  Sender: FDA-Public Use
  Company Number: JP_040603542

PATIENT
  Age: 75 Year
  Sex: Female

DRUGS (8)
  1. EVISTA [Suspect]
     Indication: OSTEOPOROSIS
     Dosage: 60 MG DAY
     Route: 048
     Dates: start: 20040526
  2. PERMAX [Suspect]
     Indication: PARKINSON'S DISEASE
     Dosage: 150 UG DAY
     Dates: start: 20040521, end: 20040617
  3. HOCHUUEKKITOU [Concomitant]
  4. FAMOTIDINE [Concomitant]
  5. EBRANTIL (URAPIDIL) [Concomitant]
  6. EBRETID (DISTIGMINE BROMIDE) [Concomitant]
  7. SERMION (NICERGOLINE) [Concomitant]
  8. GRAMALIL (TIAPRIDE HYDROCHLORIDE) [Concomitant]

REACTIONS (9)
  - ALANINE AMINOTRANSFERASE INCREASED [None]
  - ASPARTATE AMINOTRANSFERASE INCREASED [None]
  - BLOOD LACTATE DEHYDROGENASE INCREASED [None]
  - DYSURIA [None]
  - INFECTION [None]
  - LEUKOPENIA [None]
  - MALAISE [None]
  - THROMBOCYTOPENIA [None]
  - URINARY RETENTION [None]
